FAERS Safety Report 8242701-3 (Version None)
Quarter: 2012Q1

REPORT INFORMATION
  Report Type: 
  Country: None (occurrence: None)
  Receive Date: 20120329
  Receipt Date: 20120316
  Transmission Date: 20120608
  Serious: No
  Sender: FDA-Public Use
  Company Number: US-B.I. PHARMACEUTICALS,INC./RIDGEFIELD-2012-BP-01376BP

PATIENT
  Age: 77 Year
  Sex: Male
  Weight: 89.81 kg

DRUGS (1)
  1. PRADAXA [Suspect]
     Indication: ATRIAL FIBRILLATION
     Dosage: 300 MG
     Route: 048
     Dates: start: 20120120, end: 20120122

REACTIONS (2)
  - NEPHROLITHIASIS [None]
  - BLOOD URINE PRESENT [None]
